FAERS Safety Report 8128375-0 (Version None)
Quarter: 2012Q1

REPORT INFORMATION
  Report Type: 
  Country: None (occurrence: None)
  Receive Date: 20120210
  Receipt Date: 20120127
  Transmission Date: 20120608
  Serious: Yes (Hospitalization, Other)
  Sender: FDA-Public Use
  Company Number: US-ROCHE-1035363

PATIENT
  Sex: Male

DRUGS (3)
  1. ZELBORAF [Suspect]
     Indication: METASTATIC MALIGNANT MELANOMA
     Route: 048
     Dates: start: 20110801
  2. ZELBORAF [Suspect]
     Dosage: DOSE INCREASED
     Route: 048
  3. ZELBORAF [Suspect]
     Route: 048
     Dates: start: 20111001, end: 20111201

REACTIONS (8)
  - RASH [None]
  - NEOPLASM SKIN [None]
  - MELANOCYTIC NAEVUS [None]
  - DRUG INEFFECTIVE [None]
  - BONE NEOPLASM [None]
  - VASCULITIS [None]
  - ACROCHORDON [None]
  - BACK PAIN [None]
